FAERS Safety Report 8975458 (Version 6)
Quarter: 2013Q2

REPORT INFORMATION
  Report Type: Spontaneous
  Country: US (occurrence: US)
  Receive Date: 20121219
  Receipt Date: 20130628
  Transmission Date: 20140414
  Serious: No
  Sender: FDA-Public Use
  Company Number: US-PFIZER INC-2012318493

PATIENT
  Age: 64 Year
  Sex: Female
  Weight: 65.31 kg

DRUGS (15)
  1. SUTENT [Suspect]
     Indication: BRAIN NEOPLASM MALIGNANT
     Dosage: 50 MG, 1X/DAY, 4 WEEKS ON/2 WEEKS OFF
     Route: 048
     Dates: start: 2012, end: 20130214
  2. SUTENT [Suspect]
     Indication: METASTASES TO LIVER
     Dosage: 12.5 MG, TWICE DAILY, 4 WEEK THEN 2 WEEK OFF.
     Route: 048
  3. SUTENT [Suspect]
     Indication: METASTASES TO LUNG
  4. HYDROCHLOROTHIAZIDE [Concomitant]
     Indication: HYPERTENSION
     Dosage: 25 MG, DAILY
  5. VALIUM [Concomitant]
     Indication: ANXIETY
     Dosage: UNK
  6. ZOLOFT [Concomitant]
     Indication: EMOTIONAL DISORDER
     Dosage: UNK
  7. OMEPRAZOLE [Concomitant]
     Dosage: UNK
  8. MEGACE [Concomitant]
     Dosage: UNK
  9. AMBIEN [Concomitant]
     Dosage: UNK
  10. PHENERGAN [Concomitant]
     Dosage: UNK
  11. LACTULOSE [Concomitant]
     Dosage: UNK
  12. COLACE [Concomitant]
     Dosage: UNK
  13. BAKING SODA [Concomitant]
     Dosage: UNK
  14. MIRACLE MOUTH WASH [Concomitant]
     Dosage: UNK
  15. LOMOTIL [Concomitant]
     Dosage: UNK

REACTIONS (17)
  - Blood pressure increased [Unknown]
  - Fatigue [Not Recovered/Not Resolved]
  - Vomiting [Unknown]
  - Constipation [Recovered/Resolved]
  - Sluggishness [Unknown]
  - Irritability [Unknown]
  - Blood count abnormal [Unknown]
  - Nausea [Unknown]
  - Yellow skin [Unknown]
  - Stomatitis [Unknown]
  - Eye infection [Unknown]
  - Platelet count decreased [Unknown]
  - Depression [Unknown]
  - Off label use [Recovering/Resolving]
  - Diarrhoea [Unknown]
  - Eye pain [Unknown]
  - Eye disorder [Unknown]
